FAERS Safety Report 17048074 (Version 3)
Quarter: 2020Q2

REPORT INFORMATION
  Report Type: Spontaneous
  Country: US (occurrence: US)
  Receive Date: 20191119
  Receipt Date: 20200505
  Transmission Date: 20200713
  Serious: No
  Sender: FDA-Public Use
  Company Number: US-PFIZER INC-2019351702

PATIENT
  Age: 13 Year
  Sex: Male
  Weight: 36.74 kg

DRUGS (4)
  1. GENOTROPIN [Suspect]
     Active Substance: SOMATROPIN
     Dosage: UNK
  2. GENOTROPIN [Suspect]
     Active Substance: SOMATROPIN
     Dosage: UNK
  3. GENOTROPIN [Suspect]
     Active Substance: SOMATROPIN
     Dosage: 1.6 MG ONCE A DAY
     Dates: start: 201810
  4. GENOTROPIN [Suspect]
     Active Substance: SOMATROPIN
     Indication: GROWTH DISORDER
     Dosage: 1.8 MG, DAILY
     Dates: start: 20181017

REACTIONS (6)
  - Device leakage [Unknown]
  - Product dose omission [Unknown]
  - Needle issue [Unknown]
  - Device dispensing error [Unknown]
  - Injection site pain [Unknown]
  - Anxiety [Unknown]

NARRATIVE: CASE EVENT DATE: 20190309
